FAERS Safety Report 10012346 (Version 1)
Quarter: 2014Q1

REPORT INFORMATION
  Report Type: Report from Study
  Country: CA (occurrence: CA)
  Receive Date: 20140314
  Receipt Date: 20140314
  Transmission Date: 20141002
  Serious: Yes (Other)
  Sender: FDA-Public Use
  Company Number: CA-JNJFOC-20140304369

PATIENT
  Age: 55 Year
  Sex: Male
  Weight: 58 kg

DRUGS (7)
  1. REMICADE [Suspect]
     Indication: CROHN^S DISEASE
     Route: 042
     Dates: start: 20140123
  2. LOSEC [Concomitant]
     Route: 048
  3. ALTACE [Concomitant]
     Route: 048
  4. WARFARIN [Concomitant]
     Route: 048
  5. VITAMIN D [Concomitant]
     Route: 065
  6. CALCIUM [Concomitant]
     Route: 065
  7. FOLIC ACID [Concomitant]
     Route: 065

REACTIONS (1)
  - Incisional drainage [Recovering/Resolving]
